FAERS Safety Report 8431933-7 (Version None)
Quarter: 2012Q2

REPORT INFORMATION
  Report Type: 
  Country: None (occurrence: None)
  Receive Date: 20120613
  Receipt Date: 20110822
  Transmission Date: 20120825
  Serious: No
  Sender: FDA-Public Use
  Company Number: US-ASTRAZENECA-2011SE46103

PATIENT
  Age: 65 Year
  Sex: Female

DRUGS (3)
  1. RHINOCORT [Suspect]
     Dosage: ONE SPRAYS
     Route: 045
  2. NEXIUM [Suspect]
     Dosage: TWO CAPSULE
     Route: 048
  3. RHINOCORT [Suspect]
     Dosage: TWO SPRAYS
     Route: 045

REACTIONS (8)
  - ERUCTATION [None]
  - NAUSEA [None]
  - ABDOMINAL DISCOMFORT [None]
  - THERAPEUTIC RESPONSE DECREASED [None]
  - OESOPHAGEAL DISORDER [None]
  - DRUG DOSE OMISSION [None]
  - INCORRECT DOSE ADMINISTERED [None]
  - DRUG INEFFECTIVE [None]
